FAERS Safety Report 9819559 (Version 2)
Quarter: 2014Q1

REPORT INFORMATION
  Report Type: Spontaneous
  Country: US (occurrence: US)
  Receive Date: 20140115
  Receipt Date: 20140115
  Transmission Date: 20141002
  Serious: Yes (Hospitalization)
  Sender: FDA-Public Use
  Company Number: US-B.I. PHARMACEUTICALS,INC./RIDGEFIELD-2013-BI-22803BP

PATIENT
  Age: 78 Year
  Sex: Male
  Weight: 77.11 kg

DRUGS (8)
  1. PRADAXA [Suspect]
     Indication: ATRIAL FIBRILLATION
     Dosage: 150 MG
     Route: 048
     Dates: start: 20111121, end: 20120301
  2. AMOXICILLIN [Concomitant]
     Dosage: 2000 MG
     Route: 048
  3. COREG [Concomitant]
     Dosage: 25 MG
     Route: 048
  4. BIAXIN [Concomitant]
  5. LASIX [Concomitant]
     Dosage: 20 MG
  6. COZAAR [Concomitant]
     Dosage: 50 MG
  7. LOVASTATIN [Concomitant]
     Dosage: 40 MG
  8. PROTONIX [Concomitant]
     Dosage: 80 MG
     Route: 048

REACTIONS (3)
  - Haemothorax [Unknown]
  - Atrial fibrillation [Unknown]
  - Gastrointestinal haemorrhage [Unknown]
